FAERS Safety Report 16334127 (Version 1)
Quarter: 2019Q2

REPORT INFORMATION
  Report Type: Report from Study
  Country: US (occurrence: US)
  Receive Date: 20190520
  Receipt Date: 20190520
  Transmission Date: 20190711
  Serious: Yes (Death, Life-Threatening, Hospitalization, Other)
  Sender: FDA-Public Use
  Company Number: US-MYLANLABS-2019M1047659

PATIENT
  Age: 47 Year
  Sex: Male

DRUGS (4)
  1. FLUDARABINE [Suspect]
     Active Substance: FLUDARABINE PHOSPHATE
     Indication: GLIOBLASTOMA
     Dosage: THE THERAPY WAS PLANNED FOR 5 DAYS FOLLOWED BY CHIMER ANTIGEN RECEPTOR-TRANSDUCED CELLS INFUSION
     Route: 065
  2. INTERLEUKIN-2 [Concomitant]
     Active Substance: ALDESLEUKIN
     Indication: GLIOBLASTOMA
     Dosage: ADMINISTRATION STARTED WITHIN 24 HOURS OF CELL TRANSFER AND CONTINUED EVERY 8 HOURS TO TOLERANCE
     Route: 042
  3. CYCLOPHOSPHAMIDE. [Suspect]
     Active Substance: CYCLOPHOSPHAMIDE
     Indication: GLIOBLASTOMA
     Dosage: THE THERAPY WAS PLANNED FOR 2 DAYS FOLLOWED BY FLUDARABINE
     Route: 065
  4. DEXAMETHASONE. [Concomitant]
     Active Substance: DEXAMETHASONE
     Indication: STEROID THERAPY
     Route: 065

REACTIONS (8)
  - Lymphopenia [Recovered/Resolved]
  - Dyspnoea [Fatal]
  - Neutropenia [Recovered/Resolved]
  - Hypotension [Fatal]
  - Pulmonary oedema [Fatal]
  - Oxygen saturation decreased [Fatal]
  - Pulmonary toxicity [Fatal]
  - Thrombocytopenia [Recovered/Resolved]
